FAERS Safety Report 15004590 (Version 1)
Quarter: 2018Q2

REPORT INFORMATION
  Report Type: Spontaneous
  Country: US (occurrence: US)
  Receive Date: 20180521
  Receipt Date: 20180521
  Transmission Date: 20180711
  Serious: Yes (Hospitalization)
  Sender: FDA-Public Use
  Company Number: None

PATIENT
  Age: 75 Year
  Sex: Female
  Weight: 55 kg

DRUGS (11)
  1. WARFARIN [Suspect]
     Active Substance: WARFARIN
     Dosage: 6MG Q WTHFSUN PO
     Route: 048
  2. KLONOPIN [Concomitant]
     Active Substance: CLONAZEPAM
  3. DUONEB [Concomitant]
     Active Substance: ALBUTEROL SULFATE\IPRATROPIUM BROMIDE
  4. NTG [Concomitant]
     Active Substance: NITROGLYCERIN
  5. LASIX [Concomitant]
     Active Substance: FUROSEMIDE
  6. NIFEREX [Concomitant]
  7. ATENOLOL. [Concomitant]
     Active Substance: ATENOLOL
  8. WARFARIN [Suspect]
     Active Substance: WARFARIN
     Indication: ATRIAL FIBRILLATION
     Dosage: 5MG QPM W/MEAL PO?
     Route: 048
  9. ADVAIR HFA [Concomitant]
     Active Substance: FLUTICASONE PROPIONATE\SALMETEROL XINAFOATE
  10. MAGNESIUM [Concomitant]
     Active Substance: MAGNESIUM
  11. COMBIVENT [Concomitant]
     Active Substance: ALBUTEROL SULFATE\IPRATROPIUM BROMIDE

REACTIONS (3)
  - International normalised ratio increased [None]
  - Occult blood positive [None]
  - Iron deficiency anaemia [None]

NARRATIVE: CASE EVENT DATE: 20180109
